FAERS Safety Report 8634084 (Version 3)
Quarter: 2013Q1

REPORT INFORMATION
  Report Type: Spontaneous
  Country: US (occurrence: None)
  Receive Date: 20120612
  Receipt Date: 20130320
  Transmission Date: 20140127
  Serious: Yes (Other)
  Sender: FDA-Public Use
  Company Number: ADR-2012-00766

PATIENT
  Sex: Female

DRUGS (2)
  1. LIORESAL [Suspect]
     Indication: MUSCLE SPASTICITY
     Dosage: 2000MCG
  2. LIORESAL [Suspect]
     Indication: MUSCLE SPASTICITY
     Dosage: 2000MCG

REACTIONS (9)
  - Muscle spasticity [None]
  - Condition aggravated [None]
  - Muscle spasms [None]
  - Infection [None]
  - Malaise [None]
  - Discomfort [None]
  - Decubitus ulcer [None]
  - Streptococcus test positive [None]
  - Bronchitis [None]
